FAERS Safety Report 9423101 (Version 1)
Quarter: 2013Q3

REPORT INFORMATION
  Report Type: Spontaneous
  Country: JP (occurrence: JP)
  Receive Date: 20130726
  Receipt Date: 20130726
  Transmission Date: 20140515
  Serious: Yes (Hospitalization)
  Sender: FDA-Public Use
  Company Number: JP-BAUSCH-BL-2013-004264

PATIENT
  Age: 74 Year
  Sex: Male

DRUGS (4)
  1. BRONUCK OPHTHALMIC SOLUTION 0.1% [Suspect]
     Indication: CONJUNCTIVITIS
     Route: 047
     Dates: start: 20101227
  2. LUMIGAN [Suspect]
     Indication: NORMAL TENSION GLAUCOMA
     Route: 047
     Dates: start: 20110615
  3. TEARBALANCE [Concomitant]
     Indication: PRODUCT USED FOR UNKNOWN INDICATION
     Route: 047
     Dates: start: 20110112
  4. MIKELAN [Concomitant]
     Indication: PRODUCT USED FOR UNKNOWN INDICATION
     Route: 047
     Dates: start: 20101227

REACTIONS (4)
  - Punctate keratitis [Recovering/Resolving]
  - Visual field defect [Recovering/Resolving]
  - Blepharal pigmentation [Recovering/Resolving]
  - Growth of eyelashes [Recovering/Resolving]
